FAERS Safety Report 9503283 (Version 1)
Quarter: 2013Q3

REPORT INFORMATION
  Report Type: Report from Study
  Country: US (occurrence: US)
  Receive Date: 20130906
  Receipt Date: 20130906
  Transmission Date: 20140515
  Serious: Yes (Hospitalization, Other)
  Sender: FDA-Public Use
  Company Number: US-TAKEDA-2013TUS000067

PATIENT
  Age: 71 Year
  Sex: Male
  Weight: 103.6 kg

DRUGS (16)
  1. ALLOPURINOL [Suspect]
     Indication: TYPE 2 DIABETES MELLITUS
     Dosage: UNK UNK, QD
     Route: 048
     Dates: start: 20110928
  2. FEBUXOSTAT [Suspect]
     Indication: TYPE 2 DIABETES MELLITUS
     Dosage: UNK UNK, QD
     Route: 048
     Dates: start: 20110928
  3. FISH OIL [Concomitant]
     Indication: MEDICAL DIET
     Dosage: 1000 MG, TID
     Route: 048
     Dates: start: 2000
  4. FISH OIL [Concomitant]
     Indication: HYPERCHOLESTEROLAEMIA
  5. METOPROLOL [Concomitant]
     Indication: HYPERTENSION
     Dosage: 100 MG, BID
     Route: 048
     Dates: start: 1995
  6. POTASSIUM [Concomitant]
     Indication: MEDICAL DIET
     Dosage: 10 MEQ, QD
     Route: 048
     Dates: start: 2000
  7. LISINOPRIL [Concomitant]
     Indication: HYPERTENSION
     Dosage: 10 MG, QD
     Route: 048
     Dates: start: 1995
  8. DIGOXIN [Concomitant]
     Indication: HYPERTENSION
     Dosage: 0.2 MG, QD
     Route: 048
     Dates: start: 1997
  9. TEMAZEPAM [Concomitant]
     Indication: INSOMNIA
     Dosage: 15 MG, QD
     Route: 048
     Dates: start: 2009
  10. TEMAZEPAM [Concomitant]
     Indication: ANXIETY
  11. SIMVASTATIN [Concomitant]
     Indication: HYPERCHOLESTEROLAEMIA
     Dosage: 100 MG, QD
     Route: 048
     Dates: start: 2000
  12. ASPIRIN [Concomitant]
     Indication: CARDIOVASCULAR EVENT PROPHYLAXIS
     Dosage: 325 MG, QD
     Route: 048
     Dates: start: 1997
  13. DILTIAZEM [Concomitant]
     Indication: HYPERTENSION
     Dosage: 240 MG, QD
     Route: 048
     Dates: start: 1997
  14. NIACIN [Concomitant]
     Indication: HYPERCHOLESTEROLAEMIA
     Dosage: 1 DF, QD
     Route: 048
     Dates: start: 2000
  15. ZOLPIDEM [Concomitant]
     Indication: INSOMNIA
     Dosage: 10 MG, QD
     Route: 048
     Dates: start: 2009
  16. OXYCODONE [Concomitant]
     Indication: NECK PAIN
     Dosage: 5 MG, BID
     Route: 048
     Dates: start: 20120506

REACTIONS (3)
  - Respiratory failure [Recovered/Resolved]
  - Pneumonia aspiration [Recovered/Resolved]
  - Delirium tremens [Recovered/Resolved]
